FAERS Safety Report 18385529 (Version 2)
Quarter: 2021Q1

REPORT INFORMATION
  Report Type: Spontaneous
  Country: US (occurrence: US)
  Receive Date: 20201015
  Receipt Date: 20210217
  Transmission Date: 20210419
  Serious: No
  Sender: FDA-Public Use
  Company Number: US-SHIRE-US202033505

PATIENT
  Sex: Male
  Weight: 71 kg

DRUGS (2)
  1. MOTEGRITY [Suspect]
     Active Substance: PRUCALOPRIDE SUCCINATE
     Indication: GASTROINTESTINAL BACTERIAL OVERGROWTH
     Dosage: 0.5 MILLIGRAM, 1X/DAY:QD (ONCE A DAY)
     Route: 065
     Dates: start: 20201007
  2. ENTYVIO [Suspect]
     Active Substance: VEDOLIZUMAB
     Indication: CROHN^S DISEASE
     Dosage: UNK, EVERY 8 WK
     Route: 042
     Dates: start: 201503

REACTIONS (2)
  - Renal disorder [Unknown]
  - Off label use [Unknown]
